FAERS Safety Report 15722183 (Version 2)
Quarter: 2018Q4

REPORT INFORMATION
  Report Type: Spontaneous
  Country: GR (occurrence: GR)
  Receive Date: 20181214
  Receipt Date: 20181231
  Transmission Date: 20190205
  Serious: Yes (Death)
  Sender: FDA-Public Use
  Company Number: GR-ROCHE-2230868

PATIENT
  Age: 69 Year
  Sex: Female
  Weight: 45 kg

DRUGS (10)
  1. ATORVASTATIN [Concomitant]
     Active Substance: ATORVASTATIN
  2. SALOSPIR [Concomitant]
     Active Substance: ASPIRIN
  3. LEXOTANIL [Concomitant]
     Active Substance: BROMAZEPAM
  4. RANITIDINE. [Concomitant]
     Active Substance: RANITIDINE
  5. PERJETA [Suspect]
     Active Substance: PERTUZUMAB
     Indication: BREAST CANCER STAGE IV
     Route: 042
     Dates: start: 20181203, end: 20181203
  6. TELMISARTAN. [Concomitant]
     Active Substance: TELMISARTAN
  7. HERCEPTIN [Suspect]
     Active Substance: TRASTUZUMAB
     Indication: BREAST CANCER STAGE IV
     Route: 058
     Dates: start: 20181203, end: 20181203
  8. TRIMETAZIDE [Concomitant]
  9. NEBIVOLOL. [Concomitant]
     Active Substance: NEBIVOLOL
  10. DOCETAXEL. [Suspect]
     Active Substance: DOCETAXEL
     Indication: BREAST CANCER STAGE IV
     Route: 042
     Dates: start: 20181203, end: 20181203

REACTIONS (3)
  - Fatigue [Fatal]
  - Pneumonia [Fatal]
  - Diarrhoea [Fatal]

NARRATIVE: CASE EVENT DATE: 20181210
